FAERS Safety Report 4393128-6 (Version None)
Quarter: 2004Q3

REPORT INFORMATION
  Report Type: 
  Country: None (occurrence: None)
  Receive Date: 20040702
  Receipt Date: 20040409
  Transmission Date: 20050211
  Serious: Yes (Other)
  Sender: FDA-Public Use
  Company Number: 2004UW07236

PATIENT
  Age: 81 Year
  Sex: Female
  Weight: 64.8644 kg

DRUGS (3)
  1. CRESTOR [Suspect]
     Indication: BLOOD CHOLESTEROL INCREASED
     Dates: end: 20040101
  2. LEVAQUIN [Concomitant]
  3. METRONIDAZOLE [Concomitant]

REACTIONS (2)
  - SOMNOLENCE [None]
  - YAWNING [None]
